FAERS Safety Report 13280837 (Version 2)
Quarter: 2017Q2

REPORT INFORMATION
  Report Type: Spontaneous
  Country: US (occurrence: US)
  Receive Date: 20170301
  Receipt Date: 20170425
  Transmission Date: 20170830
  Serious: No
  Sender: FDA-Public Use
  Company Number: US-JNJFOC-20170227164

PATIENT
  Sex: Female
  Weight: 77.11 kg

DRUGS (1)
  1. ULTRAM [Suspect]
     Active Substance: TRAMADOL HYDROCHLORIDE
     Indication: PAIN
     Route: 048

REACTIONS (3)
  - Drug hypersensitivity [Unknown]
  - Vertigo [Recovered/Resolved]
  - Adverse event [Recovered/Resolved]
